FAERS Safety Report 26152590 (Version 1)
Quarter: 2025Q4

REPORT INFORMATION
  Report Type: Spontaneous
  Country: US (occurrence: US)
  Receive Date: 20251214
  Receipt Date: 20251214
  Transmission Date: 20260118
  Serious: No
  Sender: ABBVIE
  Company Number: US-ABBVIE-6585464

PATIENT

DRUGS (1)
  1. HUMIRA [Suspect]
     Active Substance: ADALIMUMAB
     Indication: Rheumatoid arthritis
     Dosage: 40MG/0.4ML
     Route: 058

REACTIONS (5)
  - Injection site discharge [Not Recovered/Not Resolved]
  - Injection site haemorrhage [Unknown]
  - Migraine [Unknown]
  - Attention deficit hyperactivity disorder [Unknown]
  - Injection site bruising [Unknown]
